FAERS Safety Report 10062929 (Version 1)
Quarter: 2014Q1

REPORT INFORMATION
  Report Type: Spontaneous
  Country: US (occurrence: None)
  Receive Date: 20140328
  Receipt Date: 20140328
  Transmission Date: 20141002
  Serious: Yes (Life-Threatening, Hospitalization)
  Sender: FDA-Public Use
  Company Number: PHEH2014US001711

PATIENT
  Age: 70 Year
  Sex: Female
  Weight: 62.2 kg

DRUGS (1)
  1. AFINITOR [Suspect]
     Indication: BREAST CANCER
     Route: 048
     Dates: start: 20130930, end: 20131217

REACTIONS (2)
  - Renal failure acute [None]
  - Urinary tract infection [None]
